FAERS Safety Report 4707483-8 (Version None)
Quarter: 2005Q3

REPORT INFORMATION
  Report Type: 
  Country: None (occurrence: None)
  Receive Date: 20050706
  Receipt Date: 20050624
  Transmission Date: 20060218
  Serious: Yes (Hospitalization)
  Sender: FDA-Public Use
  Company Number: FR-GLAXOSMITHKLINE-B0385540A

PATIENT
  Age: 82 Year
  Sex: Female

DRUGS (5)
  1. DEROXAT [Suspect]
     Indication: ILL-DEFINED DISORDER
     Dosage: 20MG PER DAY
     Route: 048
     Dates: start: 20030101
  2. LASIX [Suspect]
     Dosage: 40MG PER DAY
     Route: 048
  3. LYTOS [Suspect]
     Dosage: 1G PER DAY
     Route: 048
     Dates: start: 20040401
  4. EXEMESTANE [Suspect]
     Dosage: 25MG PER DAY
     Route: 048
     Dates: start: 20040401
  5. PLAVIX [Suspect]
     Dosage: 1UNIT PER DAY
     Route: 048
     Dates: start: 20030101

REACTIONS (3)
  - DISORIENTATION [None]
  - FALL [None]
  - HAEMATOMA [None]
